FAERS Safety Report 18621463 (Version 2)
Quarter: 2020Q4

REPORT INFORMATION
  Report Type: Spontaneous
  Country: JP (occurrence: JP)
  Receive Date: 20201215
  Receipt Date: 20201230
  Transmission Date: 20210114
  Serious: Yes (Hospitalization)
  Sender: FDA-Public Use
  Company Number: JP-AMGEN-JPNSP2020202402

PATIENT
  Age: 80 Year
  Sex: Female
  Weight: 35 kg

DRUGS (11)
  1. ALFACALCIDOL [Concomitant]
     Active Substance: ALFACALCIDOL
     Dosage: 1 MICROGRAM, QD
  2. PRIMPERAN [Concomitant]
     Active Substance: METOCLOPRAMIDE HYDROCHLORIDE
     Dosage: 10 MILLIGRAM, QD
  3. SODIUM SALICYLATE [Concomitant]
     Active Substance: SODIUM SALICYLATE
     Dosage: 20 MILLILITER, QD
     Dates: start: 20201204, end: 202012
  4. TAKEPRON [Concomitant]
     Active Substance: LANSOPRAZOLE
     Dosage: 15 MILLIGRAM, QD
  5. MEVALOTIN [Concomitant]
     Active Substance: PRAVASTATIN SODIUM
     Dosage: 5 MILLIGRAM, QD
  6. SALSOROITIN [CHONDROITIN SULFATE SODIUM;SALICYLATE SODIUM;SODIUM BROMI [Concomitant]
     Dosage: 10 MILLILITER, QD
  7. EVENITY [Suspect]
     Active Substance: ROMOSOZUMAB-AQQG
     Indication: OSTEOPOROSIS
     Dosage: 210 MILLIGRAM
     Route: 058
     Dates: start: 20201012, end: 20201204
  8. FERROUS CITRATE NA [Concomitant]
     Active Substance: SODIUM FERROUS CITRATE
     Dosage: 50 MILLIGRAM, QD
  9. ASPARA-CA [Concomitant]
     Active Substance: CALCIUM ASPARTATE
     Dosage: 400 MILLIGRAM, QD
  10. MAGMITT [Concomitant]
     Active Substance: MAGNESIUM OXIDE
     Dosage: 660 MILLIGRAM, QD
  11. NORSPAN [Concomitant]
     Active Substance: BUPRENORPHINE
     Dosage: 20 MILLIGRAM, QD

REACTIONS (2)
  - Mobility decreased [Unknown]
  - Fall [Unknown]

NARRATIVE: CASE EVENT DATE: 20201204
